FAERS Safety Report 6820254-1 (Version None)
Quarter: 2010Q3

REPORT INFORMATION
  Report Type: 
  Country: None (occurrence: None)
  Receive Date: 20100707
  Receipt Date: 20100629
  Transmission Date: 20110219
  Serious: Yes (Death)
  Sender: FDA-Public Use
  Company Number: GXKR2010BR07220

PATIENT
  Age: 59 Year
  Sex: Male

DRUGS (14)
  1. ACETYLSALICYLIC ACID SRT [Suspect]
     Dosage: 100 MG//DAY
     Route: 065
     Dates: start: 20010401
  2. WARFARIN SODIUM [Suspect]
     Indication: ATRIAL FIBRILLATION
     Dosage: 5 MG, UNK
     Route: 065
  3. ENALAPRIL MALEATE [Concomitant]
     Dosage: 40 MG/DAY
     Route: 065
  4. FUROSEMIDE [Concomitant]
     Dosage: 40 MG/DAY
     Route: 065
  5. FUROSEMIDE [Concomitant]
     Dosage: 80 MG/DAY
     Route: 065
  6. FUROSEMIDE [Concomitant]
     Dosage: 40 MG, UNK
     Route: 065
  7. CHLORTHALIDONE [Concomitant]
     Dosage: 25 MG/DAY
     Route: 065
  8. AMLODIPINE [Concomitant]
     Dosage: 5 MG/DAY
     Route: 065
  9. METHYLDOPA [Concomitant]
     Dosage: 500 MG/DAY
     Route: 065
  10. SPIRONOLACTONE [Concomitant]
     Dosage: 25 MG/DAY
     Route: 065
  11. METFORMIN HCL [Concomitant]
     Dosage: 1700 MG/DAY
     Route: 065
  12. METFORMIN HCL [Concomitant]
     Dosage: 2550 MG/DAY
     Route: 065
  13. CAPTOPRIL [Concomitant]
     Dosage: 75 MG, UNK
  14. DIGOXIN [Concomitant]
     Dosage: 0.25 MG, UNK
     Route: 065

REACTIONS (21)
  - CARDIAC ARREST [None]
  - CARDIO-RESPIRATORY ARREST [None]
  - CEREBRAL HAEMATOMA [None]
  - CEREBRAL HAEMORRHAGE [None]
  - CONFUSIONAL STATE [None]
  - DEPRESSED LEVEL OF CONSCIOUSNESS [None]
  - DYSARTHRIA [None]
  - ENDOTRACHEAL INTUBATION [None]
  - HAEMATOMA EVACUATION [None]
  - HEMIPLEGIA [None]
  - INTRACRANIAL PRESSURE INCREASED [None]
  - LEUKOCYTOSIS [None]
  - MULTI-ORGAN FAILURE [None]
  - PNEUMONIA [None]
  - PYREXIA [None]
  - RENAL IMPAIRMENT [None]
  - RESUSCITATION [None]
  - SEPTIC SHOCK [None]
  - SOMNOLENCE [None]
  - SUBARACHNOID HAEMORRHAGE [None]
  - VIITH NERVE PARALYSIS [None]
